FAERS Safety Report 8142146-0 (Version None)
Quarter: 2012Q1

REPORT INFORMATION
  Report Type: 
  Country: None (occurrence: None)
  Receive Date: 20120103
  Receipt Date: 20111017
  Transmission Date: 20120608
  Serious: No
  Sender: FDA-Public Use
  Company Number: AE-2011-002377

PATIENT
  Sex: Male

DRUGS (3)
  1. RIBAVIRIN [Concomitant]
  2. INCIVEK [Suspect]
     Dates: start: 20110101
  3. PEGASYS [Concomitant]

REACTIONS (4)
  - EYE DISORDER [None]
  - ABNORMAL FAECES [None]
  - ANORECTAL DISCOMFORT [None]
  - DRY EYE [None]
